FAERS Safety Report 20562097 (Version 2)
Quarter: 2022Q1

REPORT INFORMATION
  Report Type: Spontaneous
  Country: JP (occurrence: JP)
  Receive Date: 20220307
  Receipt Date: 20220317
  Transmission Date: 20220424
  Serious: Yes (Death)
  Sender: FDA-Public Use
  Company Number: JP-PFIZER INC-202200353977

PATIENT
  Age: 98 Year
  Sex: Female
  Weight: 51 kg

DRUGS (13)
  1. PAXLOVID [Suspect]
     Active Substance: NIRMATRELVIR\RITONAVIR
     Indication: COVID-19 treatment
     Dosage: [PF-07321332 150 MG]/[RITONAVIR 100 MG]; 2X/DAY
     Dates: start: 20220223, end: 20220227
  2. RABEPRAZOLE SODIUM [Concomitant]
     Active Substance: RABEPRAZOLE SODIUM
     Dosage: 10 MG, 1X/DAY AFTER BREAKFAST
     Route: 048
     Dates: start: 20220220, end: 20220227
  3. BENIDIPINE [Concomitant]
     Active Substance: BENIDIPINE
     Dosage: 4 MG, 1X/DAY  AFTER BREAKFAST
     Route: 048
     Dates: start: 20220220, end: 20220227
  4. ELDECALCITOL [Concomitant]
     Active Substance: ELDECALCITOL
     Dosage: 0.5 UG, 1X/DAY  AFTER BREAKFAST
     Route: 048
     Dates: start: 20220220, end: 20220227
  5. CELIPROLOL [Concomitant]
     Active Substance: CELIPROLOL
     Dosage: 200 MG, 1X/DAY  AFTER BREAKFAST
     Route: 048
     Dates: start: 20220220, end: 20220227
  6. BERAPROST SODIUM [Concomitant]
     Active Substance: BERAPROST SODIUM
     Dosage: 20 UG, 2X/DAY MORNING AND EVENING
     Route: 048
     Dates: start: 20220220, end: 20220227
  7. METHYLCOBALAMIN [Concomitant]
     Active Substance: METHYLCOBALAMIN
     Dosage: 500 UG, 2X/DAY MORNING AND EVENING
     Route: 048
     Dates: start: 20220220, end: 20220227
  8. PREGABALIN [Concomitant]
     Active Substance: PREGABALIN
     Dosage: 25 MG, 2X/DAY MORNING AND EVENING
     Route: 048
     Dates: start: 20220220, end: 20220227
  9. LOXOPROFEN SODIUM [Concomitant]
     Active Substance: LOXOPROFEN SODIUM
     Dosage: 60 MG, 3X/DAY AFTER EACH MEAL
     Route: 048
     Dates: start: 20220224, end: 20220225
  10. REBAMIPIDE [Concomitant]
     Active Substance: REBAMIPIDE
     Dosage: 100 MG, 3X/DAY AFTER EACH MEAL
     Route: 048
     Dates: start: 20220224, end: 20220225
  11. KREMEZIN [Concomitant]
     Active Substance: ACTIVATED CHARCOAL
     Dosage: 500 MG, 2X/DAY BETWEEN MEALS (MORNING / EVENING)
     Route: 048
     Dates: start: 20220220, end: 20220227
  12. POTASSIUM CHLORIDE\SODIUM CHLORIDE\SODIUM LACTATE [Concomitant]
     Active Substance: POTASSIUM CHLORIDE\SODIUM CHLORIDE\SODIUM LACTATE
     Dosage: 500 ML, 1X/DAY
     Route: 042
     Dates: start: 20220221, end: 20220228
  13. AMPICILLIN SODIUM\SULBACTAM SODIUM [Concomitant]
     Active Substance: AMPICILLIN SODIUM\SULBACTAM SODIUM
     Dosage: 3 G, 2X/DAY
     Route: 042
     Dates: start: 20220221, end: 20220228

REACTIONS (11)
  - Cardio-respiratory arrest [Fatal]
  - COVID-19 [Fatal]
  - Drug ineffective for unapproved indication [Fatal]
  - Thrombosis [Fatal]
  - Decreased appetite [Unknown]
  - Blood chloride decreased [Unknown]
  - Blood urea increased [Unknown]
  - Blood pressure decreased [Unknown]
  - Glomerular filtration rate decreased [Unknown]
  - Protein total decreased [Unknown]
  - Off label use [Unknown]

NARRATIVE: CASE EVENT DATE: 20220223
